FAERS Safety Report 13660058 (Version 1)
Quarter: 2017Q2

REPORT INFORMATION
  Report Type: Spontaneous
  Country: FR (occurrence: FR)
  Receive Date: 20170616
  Receipt Date: 20170616
  Transmission Date: 20170830
  Serious: Yes (Hospitalization)
  Sender: FDA-Public Use
  Company Number: FR-ASTRAZENECA-2017SE61628

PATIENT
  Age: 31069 Day
  Sex: Male

DRUGS (11)
  1. CASODEX [Suspect]
     Active Substance: BICALUTAMIDE
     Indication: PROSTATE CANCER
     Dosage: 150.0MG UNKNOWN
     Route: 048
     Dates: start: 20160410
  2. COUMADINE [Interacting]
     Active Substance: WARFARIN SODIUM
     Indication: ISCHAEMIC STROKE
     Route: 048
     Dates: start: 20160419, end: 20160429
  3. METFORMINE [Concomitant]
     Active Substance: METFORMIN HYDROCHLORIDE
  4. CASODEX [Interacting]
     Active Substance: BICALUTAMIDE
     Indication: PROSTATE CANCER
     Dosage: 50.0MG UNKNOWN
     Route: 048
     Dates: start: 20160415
  5. CANDESARTAN. [Concomitant]
     Active Substance: CANDESARTAN
  6. FUROSEMIDE. [Concomitant]
     Active Substance: FUROSEMIDE
  7. COUMADINE [Interacting]
     Active Substance: WARFARIN SODIUM
     Indication: ISCHAEMIC STROKE
     Dosage: 1.0MG UNKNOWN
     Route: 048
  8. AMLOR [Concomitant]
     Active Substance: AMLODIPINE BESYLATE
  9. SIMVASTATIN. [Concomitant]
     Active Substance: SIMVASTATIN
  10. SPIRONOLACTONE. [Concomitant]
     Active Substance: SPIRONOLACTONE
  11. KARDEGIC [Concomitant]
     Active Substance: ASPIRIN LYSINE

REACTIONS (3)
  - Drug interaction [Recovered/Resolved]
  - Melaena [Recovered/Resolved]
  - Haemoglobin decreased [Recovered/Resolved]

NARRATIVE: CASE EVENT DATE: 20170429
